FAERS Safety Report 4839120-6 (Version None)
Quarter: 2005Q4

REPORT INFORMATION
  Report Type: 
  Country: None (occurrence: None)
  Receive Date: 20051129
  Receipt Date: 20051122
  Transmission Date: 20060501
  Serious: Yes (Hospitalization)
  Sender: FDA-Public Use
  Company Number: FR-GLAXOSMITHKLINE-B0401645A

PATIENT
  Age: 11 Year
  Sex: Male
  Weight: 33 kg

DRUGS (6)
  1. ZOVIRAX [Suspect]
     Route: 042
     Dates: start: 20051016, end: 20051024
  2. ZOVIRAX [Suspect]
     Route: 061
     Dates: start: 20051016, end: 20051024
  3. DOLIPRANE [Suspect]
     Route: 048
     Dates: start: 20051015, end: 20051016
  4. EFFERALGAN [Suspect]
     Route: 048
     Dates: start: 20051013, end: 20051013
  5. MOPRAL [Suspect]
     Route: 042
     Dates: start: 20051016, end: 20051021
  6. PERFALGAN [Suspect]
     Route: 042
     Dates: start: 20051016, end: 20051022

REACTIONS (5)
  - CONJUNCTIVITIS [None]
  - PHARYNGOLARYNGEAL PAIN [None]
  - PYREXIA [None]
  - RASH MACULO-PAPULAR [None]
  - STEVENS-JOHNSON SYNDROME [None]
